FAERS Safety Report 23681382 (Version 2)
Quarter: 2024Q2

REPORT INFORMATION
  Report Type: Report from Study
  Country: US (occurrence: US)
  Receive Date: 20240328
  Receipt Date: 20240520
  Transmission Date: 20240715
  Serious: Yes (Hospitalization, Other)
  Sender: FDA-Public Use
  Company Number: US-ARGENX-2024-ARGX-US000782

PATIENT

DRUGS (1)
  1. VYVGART [Suspect]
     Active Substance: EFGARTIGIMOD ALFA-FCAB
     Indication: Myasthenia gravis
     Dosage: UNK
     Route: 042
     Dates: start: 20220609

REACTIONS (8)
  - Hip surgery [Unknown]
  - Bradycardia [Unknown]
  - Myasthenia gravis [Not Recovered/Not Resolved]
  - Eye symptom [Unknown]
  - Musculoskeletal discomfort [Unknown]
  - Impaired healing [Unknown]
  - Dyspnoea [Unknown]
  - Tooth infection [Unknown]

NARRATIVE: CASE EVENT DATE: 20240402
